FAERS Safety Report 7217301-4 (Version None)
Quarter: 2011Q1

REPORT INFORMATION
  Report Type: 
  Country: None (occurrence: None)
  Receive Date: 20110110
  Receipt Date: 20110105
  Transmission Date: 20110831
  Serious: Yes (Other)
  Sender: FDA-Public Use
  Company Number: US-EISAI INC.-E2020-08306-SPO-US

PATIENT
  Age: 84 Year
  Sex: Male

DRUGS (2)
  1. DONEPEZIL HCL [Suspect]
     Dosage: 10 MG  ARICEPT
     Route: 048
     Dates: end: 20101201
  2. DONEPEZIL HCL [Suspect]
     Dosage: 10 MG GENERIC DONEPEZIL
     Route: 048
     Dates: start: 20101201, end: 20101201

REACTIONS (3)
  - PSYCHOTIC DISORDER [None]
  - PARANOIA [None]
  - DELIRIUM [None]
